FAERS Safety Report 13733299 (Version 1)
Quarter: 2017Q3

REPORT INFORMATION
  Report Type: Spontaneous
  Country: US (occurrence: US)
  Receive Date: 20170707
  Receipt Date: 20170707
  Transmission Date: 20171127
  Serious: No
  Sender: FDA-Public Use
  Company Number: US-ROCHE-1566917

PATIENT
  Sex: Female
  Weight: 75.82 kg

DRUGS (4)
  1. TAXOTERE [Concomitant]
     Active Substance: DOCETAXEL
     Indication: BREAST CANCER
  2. CARBOPLATIN. [Concomitant]
     Active Substance: CARBOPLATIN
  3. PERJETA [Suspect]
     Active Substance: PERTUZUMAB
     Indication: BREAST CANCER
     Route: 042
     Dates: start: 20150319
  4. HERCEPTIN [Suspect]
     Active Substance: TRASTUZUMAB
     Indication: BREAST CANCER
     Route: 042
     Dates: start: 20150319

REACTIONS (5)
  - Presyncope [Unknown]
  - Dizziness [Unknown]
  - Flushing [Unknown]
  - Abdominal distension [Recovered/Resolved]
  - Dry mouth [Unknown]
